FAERS Safety Report 19608356 (Version 3)
Quarter: 2021Q4

REPORT INFORMATION
  Report Type: Other
  Country: CA (occurrence: CA)
  Receive Date: 20210726
  Receipt Date: 20211102
  Transmission Date: 20220303
  Serious: Yes (Hospitalization)
  Sender: FDA-Public Use
  Company Number: CA-002147023-NVSC2020CA112476

PATIENT
  Age: 29 Year
  Sex: Female

DRUGS (11)
  1. XOLAIR [Suspect]
     Active Substance: OMALIZUMAB
     Indication: Asthma
     Route: 058
     Dates: start: 20200324
  2. XOLAIR [Suspect]
     Active Substance: OMALIZUMAB
     Indication: Psoriasis
     Route: 058
     Dates: start: 20200408
  3. XOLAIR [Suspect]
     Active Substance: OMALIZUMAB
     Route: 058
  4. XOLAIR [Suspect]
     Active Substance: OMALIZUMAB
     Route: 058
     Dates: start: 20210602
  5. XOLAIR [Suspect]
     Active Substance: OMALIZUMAB
     Route: 058
     Dates: start: 20210630
  6. XOLAIR [Suspect]
     Active Substance: OMALIZUMAB
     Route: 058
     Dates: start: 20211006
  7. ZENHALE [Concomitant]
     Active Substance: FORMOTEROL FUMARATE\MOMETASONE FUROATE
     Indication: Asthma
     Dosage: 2 DF ( (200/5 MCG)), QID
     Route: 055
     Dates: start: 2017
  8. SINGULAIR [Concomitant]
     Active Substance: MONTELUKAST SODIUM
     Indication: Product used for unknown indication
     Route: 048
  9. VENTOLIN [Concomitant]
     Active Substance: ALBUTEROL SULFATE
     Indication: Product used for unknown indication
     Route: 055
  10. NUVARING [Concomitant]
     Active Substance: ETHINYL ESTRADIOL\ETONOGESTREL
     Indication: Product used for unknown indication
     Route: 065
     Dates: start: 20200329
  11. PREDNISONE [Concomitant]
     Active Substance: PREDNISONE

REACTIONS (8)
  - Hypersensitivity [Unknown]
  - Anaphylactic reaction [Recovered/Resolved]
  - Pruritus [Unknown]
  - Fatigue [Unknown]
  - Urticaria [Unknown]
  - Migraine [Unknown]
  - Asthma [Unknown]
  - Product dose omission issue [Unknown]

NARRATIVE: CASE EVENT DATE: 20200401
